FAERS Safety Report 17185561 (Version 1)
Quarter: 2019Q4

REPORT INFORMATION
  Report Type: Spontaneous
  Country: IT (occurrence: IT)
  Receive Date: 20191220
  Receipt Date: 20191220
  Transmission Date: 20200122
  Serious: Yes (Hospitalization, Other)
  Sender: FDA-Public Use
  Company Number: IT-TAKEDA-2019TUS068733

PATIENT
  Sex: Female
  Weight: 49 kg

DRUGS (6)
  1. DIDROGYL [Concomitant]
     Active Substance: CALCIFEDIOL
     Dosage: UNK, 1/WEEK
  2. PENTASA [Concomitant]
     Active Substance: MESALAMINE
     Dosage: UNK UNK, TID
  3. ENTYVIO [Suspect]
     Active Substance: VEDOLIZUMAB
     Indication: PRODUCT USED FOR UNKNOWN INDICATION
     Dosage: 300 MILLIGRAM
     Route: 042
     Dates: start: 201706, end: 20191010
  4. DIENOGEST W/ESTRADIOL [Concomitant]
     Indication: DYSMENORRHOEA
     Dosage: UNK, QD
  5. ANTRA                              /00661201/ [Concomitant]
     Active Substance: OMEPRAZOLE
     Dosage: 20 MILLIGRAM, QD
  6. ESCITALOPRAM [Concomitant]
     Active Substance: ESCITALOPRAM OXALATE
     Dosage: UNK, QD

REACTIONS (3)
  - Drug ineffective [Unknown]
  - Subileus [Unknown]
  - Iron deficiency anaemia [Unknown]

NARRATIVE: CASE EVENT DATE: 20191026
